FAERS Safety Report 21216240 (Version 1)
Quarter: 2022Q3

REPORT INFORMATION
  Report Type: Other
  Country: BE (occurrence: None)
  Receive Date: 20220816
  Receipt Date: 20220816
  Transmission Date: 20221027
  Serious: Yes (Death, Hospitalization)
  Sender: FDA-Public Use
  Company Number: BE-ROCHE-3160361

PATIENT
  Age: 73 Year
  Sex: Female

DRUGS (6)
  1. CAPECITABINE [Suspect]
     Active Substance: CAPECITABINE
     Indication: Breast cancer metastatic
     Dosage: FURTHER DOSE REDUCTION 1500 MG TWICE DAILY EVERY SEVEN IN FOURTEEN DAYS.
     Route: 048
     Dates: start: 2017
  2. FOLIC ACID [Suspect]
     Active Substance: FOLIC ACID
     Indication: Folate deficiency
     Route: 065
  3. TAMOXIFEN [Concomitant]
     Active Substance: TAMOXIFEN
     Indication: Breast cancer metastatic
  4. LETROZOLE [Concomitant]
     Active Substance: LETROZOLE
     Indication: Breast cancer metastatic
  5. FULVESTRANT [Concomitant]
     Active Substance: FULVESTRANT
     Indication: Breast cancer metastatic
  6. DENOSUMAB [Concomitant]
     Active Substance: DENOSUMAB
     Indication: Breast cancer metastatic

REACTIONS (6)
  - Palmar-plantar erythrodysaesthesia syndrome [Fatal]
  - Decreased appetite [Fatal]
  - Diarrhoea [Fatal]
  - Stomatitis [Fatal]
  - Blood folate increased [Fatal]
  - Drug interaction [Fatal]
